FAERS Safety Report 15725323 (Version 1)
Quarter: 2018Q4

REPORT INFORMATION
  Report Type: Spontaneous
  Country: US (occurrence: US)
  Receive Date: 20181215
  Receipt Date: 20181215
  Transmission Date: 20190205
  Serious: No
  Sender: FDA-Public Use
  Company Number: US-TEVA-2018-US-985267

PATIENT
  Sex: Female

DRUGS (1)
  1. LETROZOLE TABLETS [Suspect]
     Active Substance: LETROZOLE
     Route: 065
     Dates: start: 2016

REACTIONS (2)
  - Dry throat [Unknown]
  - Paranasal sinus hypersecretion [Unknown]
